FAERS Safety Report 14009689 (Version 1)
Quarter: 2017Q3

REPORT INFORMATION
  Report Type: Spontaneous
  Country: IT (occurrence: IT)
  Receive Date: 20170925
  Receipt Date: 20170925
  Transmission Date: 20171128
  Serious: Yes (Death)
  Sender: FDA-Public Use
  Company Number: IT-IMPAX LABORATORIES, INC-2017-IPXL-02738

PATIENT
  Age: 60 Year
  Sex: Male

DRUGS (3)
  1. DESMOPRESSIN ACETATE IR [Suspect]
     Active Substance: DESMOPRESSIN ACETATE
     Indication: PRODUCT USE IN UNAPPROVED INDICATION
  2. DESMOPRESSIN ACETATE IR [Suspect]
     Active Substance: DESMOPRESSIN ACETATE
     Indication: OPTIC ISCHAEMIC NEUROPATHY
     Dosage: 2 MCG/0.5 ML, UNK
     Route: 056
  3. BETAMETHASONE. [Concomitant]
     Active Substance: BETAMETHASONE
     Indication: OPTIC ISCHAEMIC NEUROPATHY
     Dosage: 2 MG/0.5 ML, UNK
     Route: 056

REACTIONS (3)
  - Acute myocardial infarction [Fatal]
  - Cardio-respiratory arrest [Fatal]
  - Product use in unapproved indication [Unknown]
